FAERS Safety Report 21338317 (Version 1)
Quarter: 2022Q3

REPORT INFORMATION
  Report Type: Spontaneous
  Country: FR (occurrence: FR)
  Receive Date: 20220915
  Receipt Date: 20220915
  Transmission Date: 20221027
  Serious: Yes (Life-Threatening)
  Sender: FDA-Public Use
  Company Number: None

PATIENT
  Age: 45 Year
  Sex: Male

DRUGS (4)
  1. SILDENAFIL CITRATE [Suspect]
     Active Substance: SILDENAFIL CITRATE
  2. CANNABIS SATIVA SUBSP. INDICA TOP [Suspect]
     Active Substance: CANNABIS SATIVA SUBSP. INDICA TOP
  3. MEPHEDRONE [Suspect]
     Active Substance: MEPHEDRONE
  4. OXYBATE [Suspect]
     Active Substance: OXYBATE

REACTIONS (2)
  - Pneumonia aspiration [Recovered/Resolved]
  - Coma [Recovered/Resolved]
